FAERS Safety Report 5229170-2 (Version None)
Quarter: 2007Q1

REPORT INFORMATION
  Report Type: 
  Country: None (occurrence: None)
  Receive Date: 20061201
  Receipt Date: 20061031
  Transmission Date: 20070707
  Serious: No
  Sender: FDA-Public Use
  Company Number: US200609006108

PATIENT
  Age: 38 Year
  Sex: Female

DRUGS (4)
  1. ZYPREXA [Suspect]
     Indication: ANXIETY DISORDER
     Dosage: 30 MG, ORAL
     Route: 048
  2. ZYPREXA [Suspect]
     Indication: ANXIETY DISORDER
     Dosage: 30 MG, ORAL
     Route: 048
     Dates: start: 20050201
  3. CYMBALTA [Suspect]
     Indication: DEPRESSION
     Dosage: 60 MG, DAILY (1/D), ORAL
     Route: 048
     Dates: start: 20060801
  4. KLONOPIN [Concomitant]

REACTIONS (4)
  - GALACTORRHOEA [None]
  - MENSTRUATION IRREGULAR [None]
  - PITUITARY TUMOUR [None]
  - PRESCRIBED OVERDOSE [None]
